FAERS Safety Report 20612576 (Version 1)
Quarter: 2022Q1

REPORT INFORMATION
  Report Type: Report from Study
  Country: MX (occurrence: MX)
  Receive Date: 20220318
  Receipt Date: 20220318
  Transmission Date: 20220423
  Serious: Yes (Other)
  Sender: FDA-Public Use
  Company Number: MX-NOVARTISPH-NVSC2022MX062725

PATIENT
  Sex: Female

DRUGS (1)
  1. EXFORGE [Suspect]
     Active Substance: AMLODIPINE BESYLATE\VALSARTAN
     Indication: Product used for unknown indication
     Dosage: 160/5 MG
     Route: 065

REACTIONS (5)
  - Cerebrovascular accident [Recovered/Resolved with Sequelae]
  - Visual impairment [Unknown]
  - Eating disorder [Unknown]
  - Gait disturbance [Unknown]
  - Dizziness [Unknown]
